FAERS Safety Report 5328037-9 (Version None)
Quarter: 2007Q2

REPORT INFORMATION
  Report Type: 
  Country: None (occurrence: None)
  Receive Date: 20070517
  Receipt Date: 20070510
  Transmission Date: 20071010
  Serious: Yes (Hospitalization)
  Sender: FDA-Public Use
  Company Number: FR-ABBOTT-06P-056-0345616-00

PATIENT
  Age: 41 Year
  Sex: Female

DRUGS (6)
  1. NORVIR [Suspect]
     Indication: HIV INFECTION
     Route: 048
     Dates: start: 20060301, end: 20060907
  2. ATAZANAVIR SULFATE [Suspect]
     Indication: HIV INFECTION
     Route: 048
     Dates: start: 20060301, end: 20060907
  3. TENOFOVIR [Suspect]
     Indication: HIV INFECTION
     Route: 048
     Dates: start: 20060301, end: 20060907
  4. TENOFOVIR [Suspect]
     Dates: start: 20060908
  5. LAMIVUDINE [Concomitant]
     Indication: DRUG USE FOR UNKNOWN INDICATION
     Dates: start: 20060908
  6. EFAVIRENZ [Concomitant]
     Indication: DRUG USE FOR UNKNOWN INDICATION
     Dates: start: 20060908

REACTIONS (5)
  - ABDOMINAL DISTENSION [None]
  - FACE OEDEMA [None]
  - LIPODYSTROPHY ACQUIRED [None]
  - LIPOHYPERTROPHY [None]
  - OEDEMA [None]
